FAERS Safety Report 8153645-X (Version None)
Quarter: 2012Q1

REPORT INFORMATION
  Report Type: 
  Country: None (occurrence: None)
  Receive Date: 20120221
  Receipt Date: 20120206
  Transmission Date: 20120608
  Serious: Yes (Other)
  Sender: FDA-Public Use
  Company Number: FR-WATSON-2012-02619

PATIENT
  Age: 79 Year
  Sex: Male

DRUGS (4)
  1. ATENOLOL [Suspect]
     Indication: PRODUCT USED FOR UNKNOWN INDICATION
     Dosage: UNK
  2. CYCLOSPORINE [Suspect]
     Indication: PRODUCT USED FOR UNKNOWN INDICATION
     Dosage: UNK
  3. SIROLIMUS [Suspect]
     Indication: BASAL CELL CARCINOMA
     Dosage: UNK
     Dates: start: 20070501, end: 20070801
  4. ATORVASTATIN [Suspect]
     Indication: PRODUCT USED FOR UNKNOWN INDICATION
     Dosage: UNK

REACTIONS (3)
  - DRUG INTERACTION [None]
  - BASAL CELL CARCINOMA [None]
  - PNEUMONITIS [None]
